FAERS Safety Report 8220029-5 (Version None)
Quarter: 2012Q1

REPORT INFORMATION
  Report Type: 
  Country: None (occurrence: None)
  Receive Date: 20120320
  Receipt Date: 20120308
  Transmission Date: 20120608
  Serious: Yes (Hospitalization, Other)
  Sender: FDA-Public Use
  Company Number: ZA-ROCHE-791366

PATIENT
  Age: 52 Year
  Sex: Female

DRUGS (1)
  1. ACTEMRA [Suspect]
     Indication: PRODUCT USED FOR UNKNOWN INDICATION
     Route: 065
     Dates: start: 20110401, end: 20110701

REACTIONS (5)
  - SEPSIS [None]
  - ARTHRITIS BACTERIAL [None]
  - PURULENT PERICARDITIS [None]
  - CARDIAC TAMPONADE [None]
  - HALLUCINATION [None]
